FAERS Safety Report 4628244-4 (Version None)
Quarter: 2005Q2

REPORT INFORMATION
  Report Type: 
  Country: None (occurrence: None)
  Receive Date: 20050406
  Receipt Date: 20050322
  Transmission Date: 20051028
  Serious: Yes (Other)
  Sender: FDA-Public Use
  Company Number: DE-JNJFOC-20041205632

PATIENT
  Sex: Female
  Weight: 56 kg

DRUGS (3)
  1. HALDOL [Suspect]
  2. HALDOL [Suspect]
     Route: 030
  3. NEUROCIL [Concomitant]

REACTIONS (10)
  - ACCOMMODATION DISORDER [None]
  - DIFFICULTY IN WALKING [None]
  - EXTRAPYRAMIDAL DISORDER [None]
  - JAW DISORDER [None]
  - PHOTOPHOBIA [None]
  - PHOTOSENSITIVITY REACTION [None]
  - SCHIZOPHRENIA, PARANOID TYPE [None]
  - TREMOR [None]
  - TRISMUS [None]
  - VISUAL DISTURBANCE [None]
